FAERS Safety Report 7232845-7 (Version None)
Quarter: 2011Q1

REPORT INFORMATION
  Report Type: 
  Country: None (occurrence: None)
  Receive Date: 20110106
  Receipt Date: 20110104
  Transmission Date: 20110831
  Serious: Yes (Death, Hospitalization)
  Sender: FDA-Public Use
  Company Number: 1000017513

PATIENT
  Age: 80 Year
  Sex: Female

DRUGS (10)
  1. ASPIRIN [Suspect]
     Indication: MYOCARDIAL ISCHAEMIA
     Dosage: 100 MG (100MG,1 IN 1 D), ORAL
     Route: 048
     Dates: end: 20101015
  2. STILNOX (ZOLPIDEM) (TABELTS) (ZOLPIDEM) [Concomitant]
  3. TOREM (TORASEMIDE) (TABLETS) (TORASEMIDE) [Concomitant]
  4. NORVASC (AMLODIPINE BESILATE) (TABLETS) (AMLODIPINE BESILATE) [Concomitant]
  5. ELTROXIN (LEVOTHYROXINE SODIUM) (TABLETS) (LEVOTHYROXINE  SODIUM) [Concomitant]
  6. OLFEN (DICLOFENAC) (TABLETS) [Suspect]
     Dosage: 150 MG (75 MG,2 IN 1 D), ORAL
     Route: 048
     Dates: start: 20100101, end: 20100921
  7. SORTIS (ATORVASTATIN) (TABLETS0 (ATORVASTATIN) [Concomitant]
  8. RAMIPRIL (RAMIPRIL) (TABLETS) (RAMIPRIL) [Concomitant]
  9. ESCITALOPRAM [Suspect]
     Dosage: 10 MG (10 MG,1 IN 1 D), ORAL
     Route: 048
     Dates: end: 20101018
  10. BELCO ZOK (METOPROLOL SUCCINATE) (TABLETS) (METOPROLOL SUCCINATE) [Concomitant]

REACTIONS (14)
  - GENERAL PHYSICAL HEALTH DETERIORATION [None]
  - GASTRIC ULCER HAEMORRHAGE [None]
  - HAEMORRHAGIC ANAEMIA [None]
  - PROCALCITONIN INCREASED [None]
  - RESPIRATORY FAILURE [None]
  - GASTRIC ULCER PERFORATION [None]
  - SEPSIS [None]
  - CANDIDIASIS [None]
  - ARRHYTHMIA [None]
  - MELAENA [None]
  - RENAL FAILURE ACUTE [None]
  - ATRIAL FIBRILLATION [None]
  - CARDIAC FAILURE [None]
  - PERITONITIS [None]
